FAERS Safety Report 10363139 (Version 1)
Quarter: 2014Q1

REPORT INFORMATION
  Report Type: Spontaneous
  Country: US (occurrence: None)
  Receive Date: 20140306
  Receipt Date: 20140306
  Transmission Date: 20141002
  Serious: Yes (Other)
  Sender: FDA-Public Use
  Company Number: 163-21880-13060269

PATIENT
  Age: 76 Year
  Sex: Male
  Weight: 78 kg

DRUGS (10)
  1. REVLIMID [Suspect]
     Indication: PLASMA CELL MYELOMA
     Dosage: 10 MG, 21 IN 21 D, PO
     Route: 048
     Dates: start: 201110
  2. DEXAMETHASONE (DEXAMETHASONE) (TABLETS) [Concomitant]
  3. ZOMETA (ZOLEDRONIC ACID) (TABLETS) [Concomitant]
  4. CARVEDILOL (CARVEDILOL) (TABLETS) [Concomitant]
  5. NITROFURANTOIN (NITROFURANTOIN) (CAPSULES) [Concomitant]
  6. LEVOTHYROXINE (LEVOTHYROXINE) (TABLETS) [Concomitant]
  7. MULTIVITAMINS (MULTIVITAMINS) (TABLETS) [Concomitant]
  8. VITAMIN D (ERGOCALCIFEROL) (TABLETS) [Concomitant]
  9. CALCIUM + VITAMIN D (LEKOVIT CA) (TABLETS) [Concomitant]
  10. ZOLPIDEM (ZOLPIDEM) (TABLETS) [Concomitant]

REACTIONS (4)
  - Road traffic accident [None]
  - Thrombosis [None]
  - Lower limb fracture [None]
  - Fatigue [None]
